FAERS Safety Report 8200528-2 (Version None)
Quarter: 2012Q1

REPORT INFORMATION
  Report Type: 
  Country: None (occurrence: None)
  Receive Date: 20120301
  Receipt Date: 20120208
  Transmission Date: 20120608
  Serious: Yes (Other)
  Sender: FDA-Public Use
  Company Number: 2011028562

PATIENT
  Age: 40 Year
  Sex: Female
  Weight: 74.8435 kg

DRUGS (23)
  1. VITAMIN D [Concomitant]
  2. LIPITOR [Concomitant]
  3. CLENIA (SULFACET /00677901/) [Concomitant]
  4. ALBUTEROL [Concomitant]
  5. HIZENTRA [Suspect]
  6. NASACORT [Concomitant]
  7. ALBUTEROL [Concomitant]
  8. TRICOR [Concomitant]
  9. SINGULAIR [Concomitant]
  10. HIZENTRA [Suspect]
  11. NEXIUM [Concomitant]
  12. ADVAIR DISKUS 100/50 [Concomitant]
  13. IMITREX [Concomitant]
  14. ZYRTEC [Concomitant]
  15. HIZENTRA [Suspect]
     Indication: IMMUNODEFICIENCY COMMON VARIABLE
     Dosage: SEE IMAGE
     Route: 058
     Dates: start: 20110208
  16. HIZENTRA [Suspect]
     Indication: HYPOGLOBULINAEMIA
     Dosage: SEE IMAGE
     Route: 058
     Dates: start: 20110208
  17. HIZENTRA [Suspect]
     Indication: CHRONIC SINUSITIS
     Dosage: SEE IMAGE
     Route: 058
     Dates: start: 20110208
  18. HIZENTRA [Suspect]
     Indication: GASTROENTERITIS
     Dosage: SEE IMAGE
     Route: 058
     Dates: start: 20110208
  19. HIZENTRA [Suspect]
     Indication: IMMUNODEFICIENCY COMMON VARIABLE
     Dosage: SEE IMAGE
     Route: 058
     Dates: start: 20110203
  20. HIZENTRA [Suspect]
     Indication: HYPOGLOBULINAEMIA
     Dosage: SEE IMAGE
     Route: 058
     Dates: start: 20110203
  21. HIZENTRA [Suspect]
     Indication: CHRONIC SINUSITIS
     Dosage: SEE IMAGE
     Route: 058
     Dates: start: 20110203
  22. HIZENTRA [Suspect]
     Indication: GASTROENTERITIS
     Dosage: SEE IMAGE
     Route: 058
     Dates: start: 20110203
  23. LISINOPRIL [Concomitant]

REACTIONS (6)
  - FATIGUE [None]
  - MALAISE [None]
  - GASTROINTESTINAL INFLAMMATION [None]
  - INFUSION SITE PAIN [None]
  - HEADACHE [None]
  - RESPIRATORY TRACT INFECTION [None]
